FAERS Safety Report 22974528 (Version 3)
Quarter: 2023Q4

REPORT INFORMATION
  Report Type: Spontaneous
  Country: US (occurrence: US)
  Receive Date: 20230923
  Receipt Date: 20231102
  Transmission Date: 20240110
  Serious: No
  Sender: FDA-Public Use
  Company Number: US-JNJFOC-20230944651

PATIENT
  Age: 40 Year
  Sex: Female

DRUGS (9)
  1. STELARA [Suspect]
     Active Substance: USTEKINUMAB
     Indication: Colitis ulcerative
     Route: 040
     Dates: start: 20230831
  2. STELARA [Suspect]
     Active Substance: USTEKINUMAB
     Route: 058
  3. ADACEL TDAP [Concomitant]
     Active Substance: TETANUS TOXOID, REDUCED DIPHTHERIA TOXOID AND ACELLULAR PERTUSSIS VACCINE ADSORBED, TDAP
     Dosage: 2 LF-(2.5-5- 3. 5 MCG(5LF/0.5 ML
     Route: 030
     Dates: start: 20230815
  4. HYOSCYAMINE SULFATE [Concomitant]
     Active Substance: HYOSCYAMINE SULFATE
     Dosage: TAKE 1-2 ON TONGUE EVERY 4 HOURS AS NEEDED FOR PAIN?QUANTITY-60 TABLETS
     Dates: start: 20200110
  5. NEXIUM I.V. [Concomitant]
     Active Substance: ESOMEPRAZOLE SODIUM
     Dosage: TAKE 2 CAPSULE BY MOUTH EVERY MORNING?QUANTITY- 30 CAPSULE
  6. PREVNAR 20 [Concomitant]
     Active Substance: PNEUMOCOCCAL 20-VALENT CONJUGATE VACCINE
     Route: 030
     Dates: start: 20230815
  7. SHINGRIX [Concomitant]
     Active Substance: RECOMBINANT VARICELLA ZOSTER VIRUS (VZV) GLYCOPROTEIN E
     Dosage: 50 MCG/0.5 ML?INJECT 0.5 ML INTRAMUSCULARLY DAY 0 AND AGAIN IN 2-6 MONTHS
  8. UBRELVY [Concomitant]
     Active Substance: UBROGEPANT
     Dosage: 1-2 PRN?QUANTITY-48
     Dates: start: 20230615
  9. ZYRTEC [Concomitant]
     Active Substance: CETIRIZINE HYDROCHLORIDE
     Dosage: 20-30 MG DAILY PRN
     Dates: start: 20230919

REACTIONS (4)
  - Rash [Recovering/Resolving]
  - Pruritus [Recovering/Resolving]
  - Cheilitis [Recovering/Resolving]
  - Lip swelling [Recovering/Resolving]
